FAERS Safety Report 4790672-4 (Version None)
Quarter: 2005Q4

REPORT INFORMATION
  Report Type: 
  Country: None (occurrence: None)
  Receive Date: 20051006
  Receipt Date: 20050713
  Transmission Date: 20060501
  Serious: Yes (Hospitalization)
  Sender: FDA-Public Use
  Company Number: GB-MERCK-0507GBR00133

PATIENT
  Age: 69 Year
  Sex: Female
  Weight: 89 kg

DRUGS (12)
  1. METFORMIN HYDROCHLORIDE [Concomitant]
     Route: 065
     Dates: start: 20010126, end: 20011015
  2. HEPARINOID AND SALICYLIC ACID [Concomitant]
     Route: 065
  3. ACETAMINOPHEN [Concomitant]
     Route: 065
  4. BENDROFLUMETHIAZIDE [Concomitant]
     Route: 065
  5. BENDROFLUMETHIAZIDE [Concomitant]
     Route: 065
  6. ZOCOR [Concomitant]
     Route: 048
     Dates: start: 20010126
  7. ENALAPRIL MALEATE [Concomitant]
     Route: 048
     Dates: start: 20010126, end: 20011014
  8. ENALAPRIL MALEATE [Concomitant]
     Route: 048
     Dates: start: 20011015
  9. RANITIDINE [Concomitant]
     Route: 065
     Dates: start: 20010116
  10. VIOXX [Suspect]
     Indication: OSTEOARTHRITIS
     Route: 048
     Dates: start: 20010126, end: 20041001
  11. VIOXX [Suspect]
     Indication: SPINAL OSTEOARTHRITIS
     Route: 048
     Dates: start: 20010126, end: 20041001
  12. PHOLCODINE [Concomitant]
     Route: 065
     Dates: start: 20010301

REACTIONS (1)
  - ACUTE MYOCARDIAL INFARCTION [None]
